FAERS Safety Report 19250729 (Version 1)
Quarter: 2021Q2

REPORT INFORMATION
  Report Type: Spontaneous
  Country: US (occurrence: US)
  Receive Date: 20210513
  Receipt Date: 20210513
  Transmission Date: 20210717
  Serious: No
  Sender: FDA-Public Use
  Company Number: US-TEVA-2021-US-1902329

PATIENT
  Age: 64 Year
  Sex: Female

DRUGS (1)
  1. AJOVY [Suspect]
     Active Substance: FREMANEZUMAB-VFRM
     Indication: MIGRAINE
     Route: 065

REACTIONS (6)
  - Memory impairment [Unknown]
  - Thinking abnormal [Unknown]
  - Impaired work ability [Unknown]
  - Communication disorder [Unknown]
  - Inability to afford medication [Unknown]
  - Mental disorder [Unknown]
